FAERS Safety Report 16427239 (Version 1)
Quarter: 2019Q3

REPORT INFORMATION
  Report Type: Spontaneous
  Country: US (occurrence: US)
  Receive Date: 20190612
  Receipt Date: 20190612
  Transmission Date: 20191004
  Serious: Yes (Hospitalization)
  Sender: FDA-Public Use
  Company Number: None

PATIENT
  Age: 54 Year
  Sex: Female

DRUGS (6)
  1. LYRICA [Concomitant]
     Active Substance: PREGABALIN
  2. SERTRALINE [Concomitant]
     Active Substance: SERTRALINE HYDROCHLORIDE
  3. BACLOFEN. [Concomitant]
     Active Substance: BACLOFEN
  4. MYOBLOC [Suspect]
     Active Substance: RIMABOTULINUMTOXINB
     Indication: TORTICOLLIS
     Dosage: ?          OTHER FREQUENCY:EVERY 90 DAYS;?
     Route: 030
     Dates: start: 20190111
  5. HYDROCODONE BITARTRATE AND ACETAMINOPHEN [Concomitant]
     Active Substance: ACETAMINOPHEN\HYDROCODONE BITARTRATE
  6. FENTANYL. [Concomitant]
     Active Substance: FENTANYL

REACTIONS (1)
  - Spinal operation [None]

NARRATIVE: CASE EVENT DATE: 20190605
